FAERS Safety Report 4784179-8 (Version None)
Quarter: 2005Q3

REPORT INFORMATION
  Report Type: 
  Country: None (occurrence: None)
  Receive Date: 20050930
  Receipt Date: 20050829
  Transmission Date: 20060218
  Serious: No
  Sender: FDA-Public Use
  Company Number: US-GLAXOSMITHKLINE-A0572186A

PATIENT
  Age: 6 Year
  Sex: Male

DRUGS (2)
  1. FLOVENT [Suspect]
     Indication: ASTHMA
     Route: 055
  2. NO CONCURRENT MEDICATION [Concomitant]

REACTIONS (2)
  - DYSGEUSIA [None]
  - PHARMACEUTICAL PRODUCT COMPLAINT [None]
